FAERS Safety Report 12809115 (Version 2)
Quarter: 2016Q4

REPORT INFORMATION
  Report Type: Spontaneous
  Country: JP (occurrence: JP)
  Receive Date: 20161004
  Receipt Date: 20161027
  Transmission Date: 20170207
  Serious: Yes (Other)
  Sender: FDA-Public Use
  Company Number: JP-ALLERGAN-1670509US

PATIENT
  Age: 74 Year
  Sex: Male

DRUGS (3)
  1. TRUSOPT S [Concomitant]
     Indication: OPEN ANGLE GLAUCOMA
     Route: 047
  2. LUMIGAN [Suspect]
     Active Substance: BIMATOPROST
     Indication: OPEN ANGLE GLAUCOMA
     Dosage: UNK
     Route: 047
  3. ALPHAGAN P [Concomitant]
     Active Substance: BRIMONIDINE TARTRATE
     Indication: OPEN ANGLE GLAUCOMA
     Route: 047

REACTIONS (7)
  - Choroidal detachment [Recovered/Resolved]
  - Hypotony of eye [Recovered/Resolved]
  - Visual acuity reduced [Recovered/Resolved]
  - Conjunctival hyperaemia [Unknown]
  - Intraocular pressure increased [Recovered/Resolved]
  - Corneal disorder [Unknown]
  - Vision blurred [Unknown]
